FAERS Safety Report 19132216 (Version 1)
Quarter: 2021Q2

REPORT INFORMATION
  Report Type: Spontaneous
  Country: US (occurrence: US)
  Receive Date: 20210413
  Receipt Date: 20210413
  Transmission Date: 20210717
  Serious: No
  Sender: FDA-Public Use
  Company Number: US-ELI_LILLY_AND_COMPANY-US202104005476

PATIENT
  Age: 12 Year
  Sex: Female

DRUGS (1)
  1. HUMATROPE [Suspect]
     Active Substance: SOMATROPIN
     Indication: GROWTH HORMONE DEFICIENCY
     Dosage: 1.5 MG, UNKNOWN
     Route: 058

REACTIONS (2)
  - Incorrect dose administered [Recovering/Resolving]
  - Product preparation issue [Recovering/Resolving]

NARRATIVE: CASE EVENT DATE: 20210408
